FAERS Safety Report 12974369 (Version 1)
Quarter: 2016Q4

REPORT INFORMATION
  Report Type: Spontaneous
  Country: US (occurrence: US)
  Receive Date: 20161125
  Receipt Date: 20161125
  Transmission Date: 20170207
  Serious: No
  Sender: FDA-Public Use
  Company Number: US-BEH-2016075511

PATIENT
  Sex: Female
  Weight: 99.77 kg

DRUGS (14)
  1. GABAPENTIN. [Concomitant]
     Active Substance: GABAPENTIN
  2. AMBIEN [Concomitant]
     Active Substance: ZOLPIDEM TARTRATE
  3. AMITRIPTYLINE [Concomitant]
     Active Substance: AMITRIPTYLINE
  4. BIAXIN [Concomitant]
     Active Substance: CLARITHROMYCIN
  5. HIZENTRA [Suspect]
     Active Substance: HUMAN IMMUNOGLOBULIN G
     Indication: IMMUNODEFICIENCY COMMON VARIABLE
     Dosage: 10 G, QW
     Route: 058
     Dates: start: 20151217
  6. PREDNISONE. [Concomitant]
     Active Substance: PREDNISONE
  7. LOVENOX [Concomitant]
     Active Substance: ENOXAPARIN SODIUM
  8. ASPIRIN. [Concomitant]
     Active Substance: ASPIRIN
  9. XYZAL [Concomitant]
     Active Substance: LEVOCETIRIZINE DIHYDROCHLORIDE
  10. ALBUTEROL                          /00139501/ [Concomitant]
     Active Substance: ALBUTEROL
  11. SINGULAIR [Concomitant]
     Active Substance: MONTELUKAST SODIUM
  12. LEVOTHYROXINE. [Concomitant]
     Active Substance: LEVOTHYROXINE
  13. WARFARIN [Concomitant]
     Active Substance: WARFARIN
  14. BYSTOLIC [Concomitant]
     Active Substance: NEBIVOLOL HYDROCHLORIDE

REACTIONS (3)
  - Upper respiratory tract infection [Unknown]
  - Heart rate increased [Unknown]
  - Blood pressure increased [Unknown]
